FAERS Safety Report 26197091 (Version 1)
Quarter: 2025Q4

REPORT INFORMATION
  Report Type: Spontaneous
  Country: EU (occurrence: None)
  Receive Date: 20251224
  Receipt Date: 20251224
  Transmission Date: 20260117
  Serious: Yes (Life-Threatening, Hospitalization)
  Sender: B. BRAUN MEDICAL INC.
  Company Number: None

PATIENT
  Age: 42 Year
  Sex: Female
  Weight: 53 kg

DRUGS (7)
  1. ACETAMINOPHEN [Suspect]
     Active Substance: ACETAMINOPHEN
  2. COCAINE [Suspect]
     Active Substance: COCAINE
  3. CYAMEMAZINE [Suspect]
     Active Substance: CYAMEMAZINE
  4. METHADONE [Suspect]
     Active Substance: METHADONE HYDROCHLORIDE
  5. VENLAFAXINE [Suspect]
     Active Substance: VENLAFAXINE HYDROCHLORIDE
  6. DIAZEPAM [Suspect]
     Active Substance: DIAZEPAM
  7. ALCOHOL [Suspect]
     Active Substance: ALCOHOL

REACTIONS (2)
  - Suicide attempt [Recovered/Resolved]
  - Cardio-respiratory arrest [Recovered/Resolved]

NARRATIVE: CASE EVENT DATE: 20250919
